FAERS Safety Report 8222485-5 (Version None)
Quarter: 2012Q1

REPORT INFORMATION
  Report Type: 
  Country: None (occurrence: None)
  Receive Date: 20120320
  Receipt Date: 20120316
  Transmission Date: 20120608
  Serious: Yes (Death, Other)
  Sender: FDA-Public Use
  Company Number: PHHO2011CH15785

PATIENT
  Sex: Male

DRUGS (4)
  1. AFINITOR [Suspect]
     Indication: MANTLE CELL LYMPHOMA
     Dosage: 10 MG, UNK
     Route: 048
     Dates: start: 20080731, end: 20100520
  2. AFINITOR [Suspect]
     Dosage: 10 MG, UNK
     Route: 048
     Dates: end: 20120124
  3. DEPAKENE [Concomitant]
     Dosage: 1500 MG, UNK
     Route: 048
  4. TOVIAZ [Concomitant]
     Dosage: 4 MG, UNK
     Route: 048

REACTIONS (2)
  - SQUAMOUS CELL CARCINOMA OF SKIN [None]
  - NEOPLASM MALIGNANT [None]
